FAERS Safety Report 7364029-6 (Version None)
Quarter: 2011Q1

REPORT INFORMATION
  Report Type: 
  Country: None (occurrence: None)
  Receive Date: 20110225
  Receipt Date: 20100712
  Transmission Date: 20110831
  Serious: Yes (Hospitalization, Other)
  Sender: FDA-Public Use
  Company Number: 2010BH018537

PATIENT
  Sex: Female

DRUGS (2)
  1. BREVIBLOC [Suspect]
     Indication: ATRIAL FIBRILLATION
     Dates: start: 20100701
  2. CARDIZEM [Concomitant]

REACTIONS (2)
  - CARDIAC ARREST [None]
  - BRADYCARDIA [None]
